FAERS Safety Report 16242893 (Version 25)
Quarter: 2023Q1

REPORT INFORMATION
  Report Type: Spontaneous
  Country: CA (occurrence: None)
  Receive Date: 20190426
  Receipt Date: 20230101
  Transmission Date: 20230417
  Serious: Yes (Hospitalization, Other)
  Sender: FDA-Public Use
  Company Number: CA-ORION CORPORATION ORION PHARMA-TREX2019-1269

PATIENT
  Age: 47 Year
  Sex: Female
  Weight: 95 kg

DRUGS (163)
  1. METHOTREXATE [Suspect]
     Active Substance: METHOTREXATE
     Indication: Rheumatoid arthritis
     Route: 065
  2. METHOTREXATE [Suspect]
     Active Substance: METHOTREXATE
     Route: 065
  3. METHOTREXATE [Suspect]
     Active Substance: METHOTREXATE
     Route: 058
  4. METHOTREXATE [Suspect]
     Active Substance: METHOTREXATE
     Route: 058
  5. METHOTREXATE [Suspect]
     Active Substance: METHOTREXATE
     Route: 065
  6. METHOTREXATE [Suspect]
     Active Substance: METHOTREXATE
     Route: 058
  7. METHOTREXATE [Suspect]
     Active Substance: METHOTREXATE
     Route: 065
  8. METHOTREXATE [Suspect]
     Active Substance: METHOTREXATE
     Route: 065
  9. METHOTREXATE [Suspect]
     Active Substance: METHOTREXATE
     Route: 065
  10. METHOTREXATE [Suspect]
     Active Substance: METHOTREXATE
     Route: 065
  11. METHOTREXATE [Suspect]
     Active Substance: METHOTREXATE
     Route: 065
  12. METHOTREXATE [Suspect]
     Active Substance: METHOTREXATE
     Route: 065
  13. METHOTREXATE [Suspect]
     Active Substance: METHOTREXATE
     Route: 065
  14. METHOTREXATE [Suspect]
     Active Substance: METHOTREXATE
     Route: 065
  15. METHOTREXATE [Suspect]
     Active Substance: METHOTREXATE
     Route: 065
  16. XELJANZ [Suspect]
     Active Substance: TOFACITINIB CITRATE
     Indication: Rheumatoid arthritis
     Route: 048
  17. XELJANZ [Suspect]
     Active Substance: TOFACITINIB CITRATE
     Route: 048
  18. XELJANZ [Suspect]
     Active Substance: TOFACITINIB CITRATE
     Route: 048
  19. ENBREL [Suspect]
     Active Substance: ETANERCEPT
     Indication: Rheumatoid arthritis
     Route: 058
  20. ENBREL [Suspect]
     Active Substance: ETANERCEPT
     Route: 065
     Dates: end: 20180919
  21. ENBREL [Suspect]
     Active Substance: ETANERCEPT
     Route: 058
     Dates: end: 20180919
  22. ENBREL [Suspect]
     Active Substance: ETANERCEPT
     Route: 058
  23. ENBREL [Suspect]
     Active Substance: ETANERCEPT
     Route: 058
  24. ENBREL [Suspect]
     Active Substance: ETANERCEPT
     Route: 065
  25. ENBREL [Suspect]
     Active Substance: ETANERCEPT
     Route: 058
  26. ENBREL [Suspect]
     Active Substance: ETANERCEPT
     Route: 065
  27. ENBREL [Suspect]
     Active Substance: ETANERCEPT
     Route: 058
     Dates: end: 20180919
  28. ENBREL [Suspect]
     Active Substance: ETANERCEPT
     Route: 058
     Dates: end: 20180919
  29. CIPROFLOXACIN [Suspect]
     Active Substance: CIPROFLOXACIN
     Indication: Product used for unknown indication
     Route: 065
  30. CIPROFLOXACIN [Suspect]
     Active Substance: CIPROFLOXACIN
     Route: 065
  31. ORENCIA [Suspect]
     Active Substance: ABATACEPT
     Indication: Product used for unknown indication
     Route: 065
  32. ORENCIA [Suspect]
     Active Substance: ABATACEPT
     Route: 042
  33. ORENCIA [Suspect]
     Active Substance: ABATACEPT
     Route: 065
  34. ENALAPRIL MALEATE [Suspect]
     Active Substance: ENALAPRIL MALEATE
     Indication: Product used for unknown indication
     Route: 065
  35. PANTOPRAZOLE MAGNESIUM [Suspect]
     Active Substance: PANTOPRAZOLE MAGNESIUM
     Indication: Product used for unknown indication
     Route: 065
  36. PANTOPRAZOLE MAGNESIUM [Suspect]
     Active Substance: PANTOPRAZOLE MAGNESIUM
     Route: 065
  37. HYDROCHLOROTHIAZIDE [Suspect]
     Active Substance: HYDROCHLOROTHIAZIDE
     Indication: Product used for unknown indication
     Route: 065
  38. HYDROCHLOROTHIAZIDE [Suspect]
     Active Substance: HYDROCHLOROTHIAZIDE
     Route: 065
  39. HYDROCHLOROTHIAZIDE [Suspect]
     Active Substance: HYDROCHLOROTHIAZIDE
     Route: 065
  40. HYDROCHLOROTHIAZIDE [Suspect]
     Active Substance: HYDROCHLOROTHIAZIDE
     Route: 065
  41. LOSARTAN POTASSIUM [Suspect]
     Active Substance: LOSARTAN POTASSIUM
     Indication: Product used for unknown indication
     Route: 065
  42. LOSARTAN POTASSIUM [Suspect]
     Active Substance: LOSARTAN POTASSIUM
     Route: 065
  43. ISONIAZID [Suspect]
     Active Substance: ISONIAZID
     Indication: Product used for unknown indication
     Route: 065
  44. ISONIAZID [Suspect]
     Active Substance: ISONIAZID
     Route: 065
  45. CEPHALEXIN MONOHYDRATE [Suspect]
     Active Substance: CEPHALEXIN MONOHYDRATE
     Indication: Product used for unknown indication
     Route: 065
  46. CEPHALEXIN MONOHYDRATE [Suspect]
     Active Substance: CEPHALEXIN MONOHYDRATE
     Route: 065
  47. PREDNISONE [Suspect]
     Active Substance: PREDNISONE
     Route: 065
  48. LOPRESSOR [Suspect]
     Active Substance: METOPROLOL TARTRATE
     Indication: Product used for unknown indication
     Route: 065
  49. LOPRESSOR [Suspect]
     Active Substance: METOPROLOL TARTRATE
     Route: 065
  50. LOPRESSOR [Suspect]
     Active Substance: METOPROLOL TARTRATE
     Route: 065
  51. PENICILLIN G [Suspect]
     Active Substance: PENICILLIN G
     Indication: Product used for unknown indication
     Route: 065
  52. PENICILLIN G [Suspect]
     Active Substance: PENICILLIN G
     Route: 065
  53. PENICILLIN G [Suspect]
     Active Substance: PENICILLIN G
     Indication: Product used for unknown indication
     Route: 065
  54. PENICILLIN G [Suspect]
     Active Substance: PENICILLIN G
     Route: 065
  55. HYDROXYCHLOROQUINE SULFATE [Suspect]
     Active Substance: HYDROXYCHLOROQUINE SULFATE
     Indication: Product used for unknown indication
     Route: 065
  56. HYDROXYCHLOROQUINE SULFATE [Suspect]
     Active Substance: HYDROXYCHLOROQUINE SULFATE
     Route: 065
  57. CELEBREX [Suspect]
     Active Substance: CELECOXIB
     Indication: Arthritis
     Route: 065
  58. CELEBREX [Suspect]
     Active Substance: CELECOXIB
     Route: 065
  59. ARAVA [Suspect]
     Active Substance: LEFLUNOMIDE
     Indication: Rheumatoid arthritis
     Route: 065
  60. BIAXIN [Suspect]
     Active Substance: CLARITHROMYCIN
     Indication: Product used for unknown indication
     Route: 065
  61. BIAXIN [Suspect]
     Active Substance: CLARITHROMYCIN
     Route: 042
  62. BIAXIN [Suspect]
     Active Substance: CLARITHROMYCIN
     Route: 065
  63. CEPHALEXIN [Suspect]
     Active Substance: CEPHALEXIN
     Indication: Product used for unknown indication
     Route: 065
  64. CEPHALEXIN [Suspect]
     Active Substance: CEPHALEXIN
     Route: 065
  65. CLINDAMYCIN [Suspect]
     Active Substance: CLINDAMYCIN
     Indication: Product used for unknown indication
     Route: 065
  66. CLINDAMYCIN [Suspect]
     Active Substance: CLINDAMYCIN
     Route: 065
  67. CODEINE [Suspect]
     Active Substance: CODEINE
     Indication: Product used for unknown indication
     Route: 065
  68. CODEINE [Suspect]
     Active Substance: CODEINE
     Route: 065
  69. PANTOPRAZOLE MAGNESIUM [Suspect]
     Active Substance: PANTOPRAZOLE MAGNESIUM
     Indication: Product used for unknown indication
     Route: 065
  70. PANTOPRAZOLE MAGNESIUM [Suspect]
     Active Substance: PANTOPRAZOLE MAGNESIUM
     Route: 065
  71. PANTOPRAZOLE MAGNESIUM [Suspect]
     Active Substance: PANTOPRAZOLE MAGNESIUM
     Route: 065
  72. PANTOPRAZOLE MAGNESIUM [Suspect]
     Active Substance: PANTOPRAZOLE MAGNESIUM
     Route: 048
  73. KEFLEX [Suspect]
     Active Substance: CEPHALEXIN
     Indication: Product used for unknown indication
     Route: 065
  74. KEFLEX [Suspect]
     Active Substance: CEPHALEXIN
     Route: 065
  75. FOSAMAX [Suspect]
     Active Substance: ALENDRONATE SODIUM
     Indication: Product used for unknown indication
     Route: 065
  76. FOSAMAX [Suspect]
     Active Substance: ALENDRONATE SODIUM
     Route: 065
  77. HYDROCHLOROTHIAZIDE [Suspect]
     Active Substance: HYDROCHLOROTHIAZIDE
     Indication: Product used for unknown indication
     Route: 065
  78. HYDROCHLOROTHIAZIDE [Suspect]
     Active Substance: HYDROCHLOROTHIAZIDE
     Route: 065
  79. HYDRALAZINE HYDROCHLORIDE [Suspect]
     Active Substance: HYDRALAZINE HYDROCHLORIDE
     Indication: Product used for unknown indication
     Route: 065
  80. HYDRALAZINE HYDROCHLORIDE [Suspect]
     Active Substance: HYDRALAZINE HYDROCHLORIDE
     Route: 065
  81. HYDRALAZINE HYDROCHLORIDE [Suspect]
     Active Substance: HYDRALAZINE HYDROCHLORIDE
     Route: 065
  82. LEVAQUIN [Suspect]
     Active Substance: LEVOFLOXACIN
     Indication: Product used for unknown indication
     Route: 065
  83. LEVAQUIN [Suspect]
     Active Substance: LEVOFLOXACIN
     Route: 065
  84. METOPROLOL TARTRATE [Suspect]
     Active Substance: METOPROLOL TARTRATE
     Indication: Product used for unknown indication
     Route: 065
  85. METOPROLOL TARTRATE [Suspect]
     Active Substance: METOPROLOL TARTRATE
     Route: 065
  86. MOXIFLOXACIN HYDROCHLORIDE [Suspect]
     Active Substance: MOXIFLOXACIN HYDROCHLORIDE
     Indication: Product used for unknown indication
     Route: 065
  87. MOXIFLOXACIN HYDROCHLORIDE [Suspect]
     Active Substance: MOXIFLOXACIN HYDROCHLORIDE
     Route: 065
  88. RABEPRAZOLE SODIUM [Suspect]
     Active Substance: RABEPRAZOLE SODIUM
     Indication: Product used for unknown indication
     Dosage: COATED
     Route: 065
  89. GLICLAZIDE [Suspect]
     Active Substance: GLICLAZIDE
     Indication: Product used for unknown indication
     Route: 065
  90. PANTOPRAZOLE [Suspect]
     Active Substance: PANTOPRAZOLE
     Indication: Product used for unknown indication
     Route: 065
  91. PANTOPRAZOLE [Suspect]
     Active Substance: PANTOPRAZOLE
     Route: 065
  92. PANTOPRAZOLE [Suspect]
     Active Substance: PANTOPRAZOLE
     Route: 065
  93. PANTOPRAZOLE [Suspect]
     Active Substance: PANTOPRAZOLE
     Route: 065
  94. ENALAPRIL [Suspect]
     Active Substance: ENALAPRIL
     Indication: Product used for unknown indication
     Route: 065
  95. ENALAPRIL [Suspect]
     Active Substance: ENALAPRIL
     Route: 065
  96. ENALAPRIL [Suspect]
     Active Substance: ENALAPRIL
     Route: 065
  97. ENALAPRIL [Suspect]
     Active Substance: ENALAPRIL
     Route: 065
  98. LOSARTAN [Suspect]
     Active Substance: LOSARTAN
     Indication: Product used for unknown indication
     Route: 065
  99. LOSARTAN [Suspect]
     Active Substance: LOSARTAN
     Route: 065
  100. LOSARTAN [Suspect]
     Active Substance: LOSARTAN
     Route: 065
  101. LOSARTAN [Suspect]
     Active Substance: LOSARTAN
     Route: 065
  102. ATENOLOL [Suspect]
     Active Substance: ATENOLOL
     Indication: Product used for unknown indication
     Route: 065
  103. ATENOLOL [Suspect]
     Active Substance: ATENOLOL
     Route: 065
  104. METOPROLOL [Suspect]
     Active Substance: METOPROLOL
     Indication: Product used for unknown indication
     Route: 065
  105. METOPROLOL [Suspect]
     Active Substance: METOPROLOL
     Route: 065
  106. PATIROMER [Suspect]
     Active Substance: PATIROMER
     Indication: Product used for unknown indication
     Route: 065
  107. SACCHARATED IRON OXIDE [Suspect]
     Active Substance: IRON SUCROSE
     Indication: Product used for unknown indication
     Route: 065
  108. HYDROXYCHLOROQUINE SULFATE [Suspect]
     Active Substance: HYDROXYCHLOROQUINE SULFATE
     Indication: Product used for unknown indication
     Route: 065
  109. BIAXIN [Suspect]
     Active Substance: CLARITHROMYCIN
     Indication: Product used for unknown indication
     Route: 065
  110. BIAXIN [Suspect]
     Active Substance: CLARITHROMYCIN
     Route: 065
  111. BIAXIN [Suspect]
     Active Substance: CLARITHROMYCIN
     Route: 065
  112. HYDROXYCHLOROQUINE DIPHOSPHATE [Suspect]
     Active Substance: HYDROXYCHLOROQUINE DIPHOSPHATE
     Indication: Product used for unknown indication
     Route: 065
  113. HYDROXYCHLOROQUINE DIPHOSPHATE [Suspect]
     Active Substance: HYDROXYCHLOROQUINE DIPHOSPHATE
     Route: 065
  114. HYDROXYCHLOROQUINE DIPHOSPHATE [Suspect]
     Active Substance: HYDROXYCHLOROQUINE DIPHOSPHATE
     Route: 065
  115. HUMIRA [Suspect]
     Active Substance: ADALIMUMAB
     Indication: Product used for unknown indication
     Route: 065
  116. CODEINE SULFATE [Suspect]
     Active Substance: CODEINE SULFATE
     Indication: Product used for unknown indication
     Route: 065
  117. AVELOX [Suspect]
     Active Substance: MOXIFLOXACIN HYDROCHLORIDE
     Indication: Product used for unknown indication
     Route: 065
  118. AVELOX [Suspect]
     Active Substance: MOXIFLOXACIN HYDROCHLORIDE
     Route: 065
  119. LEVOTHYROXINE SODIUM [Suspect]
     Active Substance: LEVOTHYROXINE SODIUM
     Indication: Product used for unknown indication
     Route: 065
  120. CLINDAMYCIN HYDROCHLORIDE [Suspect]
     Active Substance: CLINDAMYCIN HYDROCHLORIDE
     Indication: Product used for unknown indication
     Route: 065
  121. CLINDAMYCIN HYDROCHLORIDE [Suspect]
     Active Substance: CLINDAMYCIN HYDROCHLORIDE
     Route: 065
  122. HYDROXYCHLOROQUINE [Suspect]
     Active Substance: HYDROXYCHLOROQUINE
     Indication: Product used for unknown indication
     Route: 065
  123. HYDROXYCHLOROQUINE [Suspect]
     Active Substance: HYDROXYCHLOROQUINE
     Route: 065
  124. CIPRO [Suspect]
     Active Substance: CIPROFLOXACIN HYDROCHLORIDE
     Indication: Product used for unknown indication
     Route: 065
  125. CIPRO [Suspect]
     Active Substance: CIPROFLOXACIN HYDROCHLORIDE
     Route: 065
  126. CIPRO [Suspect]
     Active Substance: CIPROFLOXACIN HYDROCHLORIDE
     Route: 065
  127. CIPRO [Suspect]
     Active Substance: CIPROFLOXACIN HYDROCHLORIDE
     Route: 065
  128. LEVOTHYROXINE [Suspect]
     Active Substance: LEVOTHYROXINE
     Indication: Product used for unknown indication
     Route: 065
  129. ALENDRONATE SODIUM [Suspect]
     Active Substance: ALENDRONATE SODIUM
     Indication: Product used for unknown indication
     Route: 065
  130. CLARITHROMYCIN [Suspect]
     Active Substance: CLARITHROMYCIN
     Indication: Product used for unknown indication
     Route: 065
  131. ESOMEPRAZOLE [Concomitant]
     Active Substance: ESOMEPRAZOLE
     Indication: Abdominal discomfort
     Route: 065
  132. ESOMEPRAZOLE [Concomitant]
     Active Substance: ESOMEPRAZOLE
     Route: 065
  133. COLCHICINE [Concomitant]
     Active Substance: COLCHICINE
     Route: 065
  134. COLCHICINE [Concomitant]
     Active Substance: COLCHICINE
     Route: 065
  135. PERINDOPRIL [Concomitant]
     Active Substance: PERINDOPRIL
     Route: 065
  136. LEUCOVORIN [Concomitant]
     Active Substance: LEUCOVORIN
     Route: 065
  137. RANITIDINE [Concomitant]
     Active Substance: RANITIDINE
     Route: 065
  138. RANITIDINE [Concomitant]
     Active Substance: RANITIDINE
     Route: 065
  139. ATENOLOL [Concomitant]
     Active Substance: ATENOLOL
     Route: 065
  140. ATENOLOL [Concomitant]
     Active Substance: ATENOLOL
     Route: 065
  141. ATENOLOL [Concomitant]
     Active Substance: ATENOLOL
     Route: 065
  142. GOLD [Concomitant]
     Active Substance: GOLD
     Route: 065
  143. GOLD [Concomitant]
     Active Substance: GOLD
     Route: 065
  144. IRON SUCROSE [Concomitant]
     Active Substance: IRON SUCROSE
     Route: 065
  145. PREDNISONE [Concomitant]
     Active Substance: PREDNISONE
     Route: 065
  146. PREDNISONE [Concomitant]
     Active Substance: PREDNISONE
     Route: 065
  147. PREDNISONE [Concomitant]
     Active Substance: PREDNISONE
     Route: 065
  148. PREDNISONE [Concomitant]
     Active Substance: PREDNISONE
     Route: 065
  149. PREDNISONE [Concomitant]
     Active Substance: PREDNISONE
     Route: 065
  150. PREDNISONE [Concomitant]
     Active Substance: PREDNISONE
     Route: 065
  151. PREDNISONE [Concomitant]
     Active Substance: PREDNISONE
     Route: 065
  152. PREDNISONE [Concomitant]
     Active Substance: PREDNISONE
     Route: 065
  153. VELTASSA [Concomitant]
     Active Substance: PATIROMER
     Route: 065
  154. VELTASSA [Concomitant]
     Active Substance: PATIROMER
     Route: 065
  155. VENOFER [Concomitant]
     Active Substance: IRON SUCROSE
     Route: 065
  156. LEUCOVORIN CALCIUM [Concomitant]
     Active Substance: LEUCOVORIN CALCIUM
     Route: 065
  157. ESOMEPRAZOLE MAGNESIUM [Concomitant]
     Active Substance: ESOMEPRAZOLE MAGNESIUM
     Indication: Abdominal discomfort
     Route: 065
  158. ESOMEPRAZOLE MAGNESIUM [Concomitant]
     Active Substance: ESOMEPRAZOLE MAGNESIUM
     Route: 065
  159. RANITIDINE HYDROCHLORIDE [Concomitant]
     Active Substance: RANITIDINE HYDROCHLORIDE
     Route: 065
  160. RANITIDINE HYDROCHLORIDE [Concomitant]
     Active Substance: RANITIDINE HYDROCHLORIDE
     Route: 065
  161. RITUXIMAB [Concomitant]
     Active Substance: RITUXIMAB
     Route: 042
  162. HUMIRA [Concomitant]
     Active Substance: ADALIMUMAB
     Route: 065
  163. HYDROXYCHLOROQUINE [Concomitant]
     Active Substance: HYDROXYCHLOROQUINE
     Route: 065

REACTIONS (22)
  - Drug ineffective [Unknown]
  - Therapeutic product effect decreased [Unknown]
  - Contraindicated product administered [Unknown]
  - Cardiac failure congestive [Unknown]
  - Drug hypersensitivity [Unknown]
  - Abdominal discomfort [Unknown]
  - Abdominal pain upper [Unknown]
  - Arthralgia [Unknown]
  - Cough [Unknown]
  - Diarrhoea [Unknown]
  - Dyspnoea [Unknown]
  - Gastric disorder [Unknown]
  - Nausea [Unknown]
  - Hepatic steatosis [Unknown]
  - Hypertension [Unknown]
  - Malaise [Unknown]
  - Rash [Unknown]
  - Drug intolerance [Unknown]
  - Headache [Unknown]
  - Loss of employment [Unknown]
  - Cardiac failure [Unknown]
  - Liver disorder [Unknown]

NARRATIVE: CASE EVENT DATE: 20000101
